FAERS Safety Report 4558591-6 (Version None)
Quarter: 2005Q1

REPORT INFORMATION
  Report Type: 
  Country: None (occurrence: None)
  Receive Date: 20050119
  Receipt Date: 20050106
  Transmission Date: 20050727
  Serious: Yes (Other)
  Sender: FDA-Public Use
  Company Number: 2004056018

PATIENT
  Sex: Female
  Weight: 81.6475 kg

DRUGS (4)
  1. NEURONTIN [Suspect]
     Indication: PAIN
  2. MORPHINE SULFATE [Suspect]
     Indication: ILL-DEFINED DISORDER
  3. ALL OTHER NON-THERAPEUTIC PRODUCTS (ALL OTHER NON-THERAPEUTIC PRODUCTS [Suspect]
     Indication: ILL-DEFINED DISORDER
     Dates: end: 20010101
  4. BACLOFEN [Suspect]
     Indication: ILL-DEFINED DISORDER

REACTIONS (19)
  - ABNORMAL BEHAVIOUR [None]
  - ADVERSE EVENT [None]
  - AMNESIA [None]
  - ECONOMIC PROBLEM [None]
  - FEELING HOT [None]
  - GRANULOMA [None]
  - HEART RATE INCREASED [None]
  - HOT FLUSH [None]
  - HYPERHIDROSIS [None]
  - INADEQUATE ANALGESIA [None]
  - INSOMNIA [None]
  - LOSS OF CONSCIOUSNESS [None]
  - MEDICAL DEVICE COMPLICATION [None]
  - NERVE INJURY [None]
  - OEDEMA [None]
  - PAIN [None]
  - SPEECH DISORDER [None]
  - SPINAL DISORDER [None]
  - WEIGHT INCREASED [None]
